FAERS Safety Report 4806601-0 (Version None)
Quarter: 2005Q4

REPORT INFORMATION
  Report Type: 
  Country: None (occurrence: None)
  Receive Date: 20051021
  Receipt Date: 20040826
  Transmission Date: 20060501
  Serious: Yes (Other)
  Sender: FDA-Public Use
  Company Number: PHEH2004US09291

PATIENT
  Age: 45 Year
  Sex: Female

DRUGS (4)
  1. TAMOXIFEN [Concomitant]
  2. SYNTHROID [Concomitant]
  3. EFFEXOR [Concomitant]
  4. ZOMETA [Suspect]
     Indication: BREAST CANCER METASTATIC

REACTIONS (14)
  - ABSCESS DRAINAGE [None]
  - ACTINOMYCOSIS [None]
  - BONE DISORDER [None]
  - EXCESSIVE GRANULATION TISSUE [None]
  - FISTULA [None]
  - IMPAIRED HEALING [None]
  - OSTEOMYELITIS [None]
  - OSTEONECROSIS [None]
  - SURGERY [None]
  - TOOTH ABSCESS [None]
  - TOOTH EXTRACTION [None]
  - WOUND DEBRIDEMENT [None]
  - WOUND DEHISCENCE [None]
  - WOUND DRAINAGE [None]
